FAERS Safety Report 7594269-2 (Version None)
Quarter: 2011Q3

REPORT INFORMATION
  Report Type: 
  Country: None (occurrence: None)
  Receive Date: 20110706
  Receipt Date: 20110623
  Transmission Date: 20111222
  Serious: Yes (Other)
  Sender: FDA-Public Use
  Company Number: KR-AMGEN-KORSP2011026147

PATIENT
  Age: 67 Year
  Sex: Male

DRUGS (4)
  1. NESPO [Suspect]
  2. ESPO [Suspect]
  3. ESPO [Suspect]
     Indication: PRODUCT USED FOR UNKNOWN INDICATION
     Dosage: UNK UNK, UNK
     Route: 065
     Dates: start: 20090205
  4. NESPO [Suspect]
     Indication: PRODUCT USED FOR UNKNOWN INDICATION
     Dosage: UNK UNK, UNK
     Route: 065
     Dates: start: 20090205

REACTIONS (1)
  - APLASIA PURE RED CELL [None]
